FAERS Safety Report 9793004 (Version 1)
Quarter: 2014Q1

REPORT INFORMATION
  Report Type: Report from Study
  Country: US (occurrence: US)
  Receive Date: 20140102
  Receipt Date: 20140102
  Transmission Date: 20141002
  Serious: Yes (Other)
  Sender: FDA-Public Use
  Company Number: US-ABBVIE-13P-163-1184265-00

PATIENT
  Age: 62 Year
  Sex: Female

DRUGS (2)
  1. HUMIRA [Suspect]
     Indication: RHEUMATOID ARTHRITIS
     Dates: start: 20130128
  2. MOBIC [Concomitant]
     Indication: ARTHRALGIA

REACTIONS (6)
  - Nipple pain [Unknown]
  - Retracted nipple [Unknown]
  - Breast neoplasm [Not Recovered/Not Resolved]
  - Mastitis [Recovered/Resolved]
  - Mastitis [Recovering/Resolving]
  - Blood cholesterol increased [Unknown]
